FAERS Safety Report 10621586 (Version 1)
Quarter: 2014Q4

REPORT INFORMATION
  Report Type: Spontaneous
  Country: US (occurrence: None)
  Receive Date: 20141126
  Receipt Date: 20141126
  Transmission Date: 20150529
  Serious: No
  Sender: FDA-Public Use
  Company Number: None

PATIENT
  Age: 52 Year
  Sex: Female
  Weight: 62.6 kg

DRUGS (1)
  1. BOTOX [Suspect]
     Active Substance: ONABOTULINUMTOXINA
     Indication: SKIN WRINKLING
     Dosage: ONE TIME, GIVEN INTO/UNDER THE SKIN
     Dates: start: 20141003, end: 20141003

REACTIONS (3)
  - Wrong technique in drug usage process [None]
  - Craniofacial deformity [None]
  - Malaise [None]

NARRATIVE: CASE EVENT DATE: 20141003
